FAERS Safety Report 10364936 (Version 1)
Quarter: 2014Q3

REPORT INFORMATION
  Report Type: Spontaneous
  Country: US (occurrence: US)
  Receive Date: 20140806
  Receipt Date: 20140806
  Transmission Date: 20150326
  Serious: Yes (Other)
  Sender: FDA-Public Use
  Company Number: US-AMGEN-USASP2014058081

PATIENT
  Sex: Female

DRUGS (1)
  1. PROLIA [Suspect]
     Active Substance: DENOSUMAB
     Indication: OSTEOPOROSIS POSTMENOPAUSAL
     Dosage: UNK
     Route: 065

REACTIONS (12)
  - Weight decreased [Unknown]
  - Body height decreased [Unknown]
  - Breast cancer [Unknown]
  - Spinal deformity [Unknown]
  - Dyspepsia [Unknown]
  - Back pain [Unknown]
  - Bone density decreased [Unknown]
  - Mobility decreased [Unknown]
  - General physical health deterioration [Unknown]
  - Gastrooesophageal reflux disease [Unknown]
  - Osteoarthritis [Unknown]
  - Vitamin D deficiency [Unknown]
